FAERS Safety Report 9818011 (Version 2)
Quarter: 2014Q1

REPORT INFORMATION
  Report Type: Spontaneous
  Country: US (occurrence: US)
  Receive Date: 20140115
  Receipt Date: 20140122
  Transmission Date: 20141002
  Serious: Yes (Other)
  Sender: FDA-Public Use
  Company Number: US-RB-062004-14

PATIENT
  Age: 98 Year
  Sex: Female

DRUGS (1)
  1. MUCINEX MAXIMUM STRENGTH [Suspect]
     Indication: COUGH
     Dosage: PATIENT TOOK LAST DOSE AT 09:00 A.M. ON 06-JAN-2014.
     Route: 048
     Dates: start: 20140104

REACTIONS (4)
  - Hypoxia [Recovering/Resolving]
  - Dyspnoea [Recovering/Resolving]
  - Presyncope [Recovering/Resolving]
  - Expired drug administered [Recovered/Resolved]
